FAERS Safety Report 13299159 (Version 2)
Quarter: 2017Q2

REPORT INFORMATION
  Report Type: Spontaneous
  Country: US (occurrence: US)
  Receive Date: 20170306
  Receipt Date: 20170508
  Transmission Date: 20170830
  Serious: Yes (Other)
  Sender: FDA-Public Use
  Company Number: US-TEVA-744745USA

PATIENT
  Sex: Female

DRUGS (8)
  1. ZANTAC [Concomitant]
     Active Substance: RANITIDINE HYDROCHLORIDE
     Route: 042
  2. ATIVAN [Concomitant]
     Active Substance: LORAZEPAM
  3. BENADRYL [Concomitant]
     Active Substance: DIPHENHYDRAMINE HYDROCHLORIDE
     Route: 042
  4. CARNITINE [Concomitant]
     Active Substance: CARNITINE
     Route: 042
  5. ENOXAPARIN [Suspect]
     Active Substance: ENOXAPARIN
     Indication: DEEP VEIN THROMBOSIS
     Dosage: 90 MILLIGRAM DAILY;
     Route: 065
  6. CLONIDINE. [Concomitant]
     Active Substance: CLONIDINE
     Dosage: 0.1
  7. CLONIDINE. [Concomitant]
     Active Substance: CLONIDINE
     Dosage: 0.1
  8. LOVENOX [Concomitant]
     Active Substance: ENOXAPARIN SODIUM

REACTIONS (8)
  - Viral upper respiratory tract infection [Recovered/Resolved]
  - Anaphylactic reaction [Unknown]
  - Hypertension [Recovered/Resolved]
  - Cold sweat [Unknown]
  - Night sweats [Unknown]
  - Chills [Recovered/Resolved]
  - Feeling abnormal [Unknown]
  - Malaise [Unknown]

NARRATIVE: CASE EVENT DATE: 201702
